FAERS Safety Report 22638607 (Version 2)
Quarter: 2023Q2

REPORT INFORMATION
  Report Type: Spontaneous
  Country: US (occurrence: US)
  Receive Date: 20230626
  Receipt Date: 20230627
  Transmission Date: 20230721
  Serious: Yes (Hospitalization)
  Sender: FDA-Public Use
  Company Number: US-JNJFOC-20230648225

PATIENT
  Age: 57 Year
  Sex: Female

DRUGS (1)
  1. ACETAMINOPHEN [Suspect]
     Active Substance: ACETAMINOPHEN
     Indication: Product used for unknown indication
     Dosage: CHRONICALLY TAKING ACETAMINOPHEN
     Route: 048

REACTIONS (3)
  - Metabolic acidosis [Recovered/Resolved]
  - Pyroglutamate increased [Unknown]
  - Cardiopulmonary failure [Unknown]
